FAERS Safety Report 9216497 (Version 5)
Quarter: 2013Q4

REPORT INFORMATION
  Report Type: Spontaneous
  Country: MX (occurrence: MX)
  Receive Date: 20130408
  Receipt Date: 20131112
  Transmission Date: 20140711
  Serious: Yes (Other)
  Sender: FDA-Public Use
  Company Number: MX-ELI_LILLY_AND_COMPANY-MX201204007328

PATIENT
  Age: 31 Year
  Sex: Female

DRUGS (6)
  1. HUMALOG 25% LISPRO, 75% NPL [Suspect]
     Indication: TYPE 2 DIABETES MELLITUS
     Dosage: 18 IU, EACH MORNING
     Dates: start: 20120305
  2. HUMALOG 25% LISPRO, 75% NPL [Suspect]
     Dosage: 10 IU, AT NIGHT
     Dates: start: 20120305
  3. GLIMEPIRIDE [Concomitant]
     Indication: TYPE 2 DIABETES MELLITUS
     Dosage: UNK, QD
  4. FERRANINA [Concomitant]
     Dosage: UNK
  5. VITAMINS [Concomitant]
  6. IRON [Concomitant]
     Dosage: UNK
     Dates: start: 201202

REACTIONS (4)
  - Premature separation of placenta [Recovered/Resolved]
  - Cephalo-pelvic disproportion [Unknown]
  - Exposure during pregnancy [Recovered/Resolved]
  - High risk pregnancy [Recovered/Resolved]
